FAERS Safety Report 21046526 (Version 1)
Quarter: 2022Q3

REPORT INFORMATION
  Report Type: Spontaneous
  Country: US (occurrence: US)
  Receive Date: 20220706
  Receipt Date: 20220706
  Transmission Date: 20221026
  Serious: No
  Sender: FDA-Public Use
  Company Number: US-ALLERGAN-2220716US

PATIENT
  Age: 52 Year
  Sex: Female

DRUGS (3)
  1. UBRELVY [Suspect]
     Active Substance: UBROGEPANT
     Indication: Product used for unknown indication
     Dosage: UNK
     Route: 048
     Dates: start: 20210101, end: 20220116
  2. Meth thyroxine [Concomitant]
     Indication: Hypothyroidism
     Dosage: 0.75 ?G, QD
  3. TORADOL [Concomitant]
     Active Substance: KETOROLAC TROMETHAMINE
     Indication: Migraine
     Dosage: 10 MG, Q MONTH
     Route: 048
     Dates: end: 20220115

REACTIONS (1)
  - Migraine [Recovered/Resolved with Sequelae]

NARRATIVE: CASE EVENT DATE: 20210215
